FAERS Safety Report 4387689-0 (Version None)
Quarter: 2004Q2

REPORT INFORMATION
  Report Type: 
  Country: None (occurrence: None)
  Receive Date: 20040625
  Receipt Date: 20040610
  Transmission Date: 20050107
  Serious: Yes (Hospitalization)
  Sender: FDA-Public Use
  Company Number: CIP04001241

PATIENT
  Sex: Female

DRUGS (1)
  1. OPTINATE (RISEDRONATE SODIUM) TABLET, 30MG [Suspect]
     Indication: OSTEOPOROSIS
     Dosage: 30 MG DAILY, ORAL
     Route: 048
     Dates: start: 20010101

REACTIONS (3)
  - ACCIDENTAL OVERDOSE [None]
  - HEPATIC ENZYME INCREASED [None]
  - RHABDOMYOLYSIS [None]
